FAERS Safety Report 14946169 (Version 3)
Quarter: 2018Q2

REPORT INFORMATION
  Report Type: Spontaneous
  Country: DE (occurrence: DE)
  Receive Date: 20180529
  Receipt Date: 20180621
  Transmission Date: 20180711
  Serious: Yes (Other)
  Sender: FDA-Public Use
  Company Number: DE-BAYER-2018-100176

PATIENT
  Age: 45 Year
  Sex: Female

DRUGS (2)
  1. GYNOKADIN [ESTRADIOL VALERATE] [Concomitant]
     Indication: MENOPAUSAL SYMPTOMS
     Dosage: 2 DF, UNK
     Route: 062
     Dates: start: 201801
  2. MIRENA [Suspect]
     Active Substance: LEVONORGESTREL
     Dosage: 20 MCG/24HR, CONT

REACTIONS (2)
  - Uterine cancer [Recovered/Resolved with Sequelae]
  - Endometrial cancer [Recovered/Resolved with Sequelae]

NARRATIVE: CASE EVENT DATE: 201801
